FAERS Safety Report 7570273-5 (Version None)
Quarter: 2011Q2

REPORT INFORMATION
  Report Type: 
  Country: None (occurrence: None)
  Receive Date: 20110620
  Receipt Date: 20110614
  Transmission Date: 20111010
  Serious: Yes (Life-Threatening, Hospitalization, Disabling, Other)
  Sender: FDA-Public Use
  Company Number: 2011SP027718

PATIENT
  Age: 24 Year
  Sex: Female
  Weight: 57.1532 kg

DRUGS (1)
  1. IMPLANON [Suspect]
     Indication: CONTRACEPTION
     Dosage: 1 DF; SBDE
     Route: 059
     Dates: start: 20110425

REACTIONS (4)
  - DIZZINESS [None]
  - CARDIAC ARREST [None]
  - ASTHENIA [None]
  - SYNCOPE [None]
